FAERS Safety Report 7083074-1 (Version None)
Quarter: 2010Q4

REPORT INFORMATION
  Report Type: 
  Country: None (occurrence: None)
  Receive Date: 20101026
  Receipt Date: 20101012
  Transmission Date: 20110411
  Serious: Yes (Other)
  Sender: FDA-Public Use
  Company Number: 1000016879

PATIENT
  Age: 64 Year
  Sex: Female

DRUGS (2)
  1. MEMANTINE HCL [Suspect]
     Indication: DEMENTIA ALZHEIMER'S TYPE
     Dosage: 2 DOSAGE FORM (2 DOSAGE FORMS,1 IN 1 D),ORAL
     Route: 048
  2. ESCITALOPRAM [Suspect]
     Indication: DEPRESSION
     Dosage: 1 DOSAGE FORM (1 DOSAGE FORMS,1 IN 1 D),ORAL
     Route: 048

REACTIONS (4)
  - ABDOMINAL PAIN [None]
  - ABNORMAL BEHAVIOUR [None]
  - DELIRIUM [None]
  - HALLUCINATION [None]
